FAERS Safety Report 4285522-9 (Version None)
Quarter: 2004Q1

REPORT INFORMATION
  Report Type: 
  Country: None (occurrence: None)
  Receive Date: 20040203
  Receipt Date: 20040128
  Transmission Date: 20041129
  Serious: Yes (Other)
  Sender: FDA-Public Use
  Company Number: STA-AE-04-MTX-033

PATIENT
  Age: 31 Year
  Sex: Female

DRUGS (5)
  1. METHOTREXATE [Suspect]
     Dosage: 22.5 MG 1 X PER 1 WK, ORAL
     Route: 048
     Dates: start: 20010612
  2. ENBREL [Suspect]
     Dosage: 25 MG 2 X PER 1 WK, SC
     Route: 058
     Dates: start: 20030117, end: 20030101
  3. ENBREL [Suspect]
     Dosage: 25 MG 2 X PER WK, SC
     Route: 058
     Dates: start: 20030101
  4. VALTREX [Concomitant]
  5. UNSPECIFIED CONTRACEPTIVE (UNSPECIFIED CONTRACEPTIVE) [Concomitant]

REACTIONS (2)
  - BREAST COSMETIC SURGERY [None]
  - WOUND DEHISCENCE [None]
